FAERS Safety Report 8178526-7 (Version None)
Quarter: 2012Q1

REPORT INFORMATION
  Report Type: 
  Country: None (occurrence: None)
  Receive Date: 20120301
  Receipt Date: 20120227
  Transmission Date: 20120608
  Serious: Yes (Death, Hospitalization, Other)
  Sender: FDA-Public Use
  Company Number: PHHY2012US016720

PATIENT
  Age: 20 Year
  Sex: Male

DRUGS (2)
  1. PREDNISONE TAB [Suspect]
     Indication: SYSTEMIC LUPUS ERYTHEMATOSUS
     Dosage: 20 MG, BID
     Route: 048
  2. PLAQUENIL [Concomitant]
     Dosage: 500 MG, QD

REACTIONS (14)
  - PYREXIA [None]
  - BRADYCARDIA [None]
  - MENTAL STATUS CHANGES [None]
  - ENCEPHALITIS [None]
  - HAEMOPTYSIS [None]
  - TACHYPNOEA [None]
  - HYPOXIA [None]
  - HEMIPARESIS [None]
  - ADENOVIRUS INFECTION [None]
  - PANCYTOPENIA [None]
  - COUGH [None]
  - HYPOTENSION [None]
  - JOINT EFFUSION [None]
  - CHEST PAIN [None]
